FAERS Safety Report 8578589-0 (Version None)
Quarter: 2012Q3

REPORT INFORMATION
  Report Type: 
  Country: None (occurrence: None)
  Receive Date: 20120731
  Receipt Date: 20120731
  Transmission Date: 20120928
  Serious: No
  Sender: FDA-Public Use
  Company Number: None

PATIENT

DRUGS (1)
  1. GAS-X [Suspect]
     Dates: start: 20120203, end: 20120204

REACTIONS (2)
  - PRODUCT SOLUBILITY ABNORMAL [None]
  - TOOTH FRACTURE [None]
